FAERS Safety Report 5374547-8 (Version None)
Quarter: 2007Q2

REPORT INFORMATION
  Report Type: 
  Country: None (occurrence: None)
  Receive Date: 20070629
  Receipt Date: 20070625
  Transmission Date: 20071010
  Serious: Yes (Hospitalization, Other)
  Sender: FDA-Public Use
  Company Number: US-BRISTOL-MYERS SQUIBB COMPANY-13825013

PATIENT
  Age: 52 Year
  Sex: Female
  Weight: 102 kg

DRUGS (6)
  1. DASATINIB [Suspect]
     Indication: CHRONIC MYELOID LEUKAEMIA
     Route: 048
     Dates: start: 20070617, end: 20070617
  2. ATIVAN [Concomitant]
  3. CYMBALTA [Concomitant]
  4. FENTANYL [Concomitant]
  5. NEXIUM [Concomitant]
  6. ULTRAM [Concomitant]

REACTIONS (7)
  - ABDOMINAL PAIN [None]
  - AGITATION [None]
  - BLOOD ALKALINE PHOSPHATASE [None]
  - DIARRHOEA [None]
  - HYPERCALCAEMIA [None]
  - NAUSEA [None]
  - PYREXIA [None]
